FAERS Safety Report 5547222-4 (Version None)
Quarter: 2007Q4

REPORT INFORMATION
  Report Type: 
  Country: None (occurrence: None)
  Receive Date: 20071211
  Receipt Date: 20071203
  Transmission Date: 20080405
  Serious: Yes (Life-Threatening)
  Sender: FDA-Public Use
  Company Number: A0689622A

PATIENT
  Sex: Female

DRUGS (5)
  1. COREG CR [Suspect]
     Indication: BLOOD PRESSURE
     Dosage: 40MG UNKNOWN
     Route: 048
  2. VYTORIN [Concomitant]
  3. CARDIZEM [Concomitant]
  4. PRINZIDE [Concomitant]
  5. INSULIN [Concomitant]

REACTIONS (3)
  - HYPOGLYCAEMIA [None]
  - HYPOGLYCAEMIA UNAWARENESS [None]
  - ROAD TRAFFIC ACCIDENT [None]
